FAERS Safety Report 16308873 (Version 1)
Quarter: 2019Q2

REPORT INFORMATION
  Report Type: Spontaneous
  Country: US (occurrence: US)
  Receive Date: 20190514
  Receipt Date: 20190514
  Transmission Date: 20190711
  Serious: Yes (Hospitalization, Other)
  Sender: FDA-Public Use
  Company Number: US-AUROBINDO-AUR-APL-2019-026289

PATIENT

DRUGS (4)
  1. PREDNISONE. [Suspect]
     Active Substance: PREDNISONE
     Indication: IMMUNOSUPPRESSION
     Dosage: UNK
     Route: 065
  2. MYCOPHENOLATE MOFETIL. [Suspect]
     Active Substance: MYCOPHENOLATE MOFETIL
     Indication: IMMUNOSUPPRESSION
     Dosage: UNK
     Route: 065
  3. VALGANCICLOVIR. [Concomitant]
     Active Substance: VALGANCICLOVIR
     Indication: PROPHYLAXIS
     Dosage: UNK, 6-MONTH COURSE
     Route: 065
  4. TACROLIMUS. [Suspect]
     Active Substance: TACROLIMUS
     Indication: IMMUNOSUPPRESSION
     Dosage: UNK
     Route: 065

REACTIONS (22)
  - Aspartate aminotransferase increased [Unknown]
  - Liver injury [Unknown]
  - Herpes simplex hepatitis [Recovered/Resolved]
  - Hepatic fibrosis [Unknown]
  - Pyrexia [Unknown]
  - Viral load increased [Recovered/Resolved]
  - Portal hypertension [Unknown]
  - Ascites [Unknown]
  - Acute hepatic failure [Unknown]
  - Abdominal pain upper [Unknown]
  - Nausea [Unknown]
  - Alanine aminotransferase increased [Unknown]
  - Hepatitis acute [Unknown]
  - Vomiting [Unknown]
  - Diarrhoea [Unknown]
  - Abdominal distension [Unknown]
  - Liver function test abnormal [Unknown]
  - Hepatic necrosis [Unknown]
  - Decreased appetite [Unknown]
  - White blood cell count increased [Unknown]
  - Blood bilirubin increased [Unknown]
  - Hepatic cirrhosis [Unknown]
